FAERS Safety Report 11317549 (Version 2)
Quarter: 2015Q3

REPORT INFORMATION
  Report Type: Spontaneous
  Country: CH (occurrence: CH)
  Receive Date: 20150728
  Receipt Date: 20150805
  Transmission Date: 20151125
  Serious: Yes (Hospitalization)
  Sender: FDA-Public Use
  Company Number: CH-PFIZER INC-2015248082

PATIENT
  Age: 57 Year
  Sex: Female

DRUGS (13)
  1. KALOBA [Concomitant]
     Dosage: 50 MG, UNK
     Dates: start: 2012
  2. SINUPRET [Concomitant]
     Active Substance: HERBALS
     Dosage: UNK
     Dates: start: 2012, end: 2014
  3. CONDROSULF [Concomitant]
     Active Substance: CHONDROITIN SULFATE (CHICKEN)
     Dosage: 800 MG, 1-0-0
     Dates: start: 2013
  4. ACETAMINOPHEN. [Concomitant]
     Active Substance: ACETAMINOPHEN
     Dosage: 1 G,
     Dates: start: 2012
  5. CELEBREX [Suspect]
     Active Substance: CELECOXIB
     Dosage: 100 MG, INTERMITTENTLY
  6. MAGNESIUM [Concomitant]
     Active Substance: MAGNESIUM
     Dosage: 300 MG, 1X/DAY (0-0-0-1)
     Dates: start: 2010
  7. PANTOPRAZOLE SODIUM. [Suspect]
     Active Substance: PANTOPRAZOLE SODIUM
  8. CEFUROXIM PFIZER [Suspect]
     Active Substance: CEFUROXIME
     Dosage: 500 MG, 1-0-1
     Dates: start: 201503
  9. TOSSAMINE [Concomitant]
     Dosage: UNK
     Dates: start: 201503
  10. ECHINACIN [Suspect]
     Active Substance: ECHINACIN
     Dosage: INTERMITTENTLY
     Dates: end: 201502
  11. XYZAL [Suspect]
     Active Substance: LEVOCETIRIZINE DIHYDROCHLORIDE
     Dosage: 5 MG, (0-0-1-2)
     Dates: start: 201303
  12. IRFEN [Suspect]
     Active Substance: IBUPROFEN
     Dosage: 800 MG, (1-0-0-1)
     Dates: start: 201408
  13. BEXIN [Concomitant]
     Active Substance: DEXTROMETHORPHAN HYDROBROMIDE
     Dosage: UNK
     Dates: start: 201503

REACTIONS (1)
  - Drug-induced liver injury [Recovering/Resolving]

NARRATIVE: CASE EVENT DATE: 2015
